FAERS Safety Report 4467668-5 (Version None)
Quarter: 2004Q4

REPORT INFORMATION
  Report Type: 
  Country: None (occurrence: None)
  Receive Date: 20041001
  Receipt Date: 20040921
  Transmission Date: 20050328
  Serious: Yes (Hospitalization)
  Sender: FDA-Public Use
  Company Number: 2004UW18577

PATIENT
  Age: 68 Year
  Sex: Female

DRUGS (6)
  1. IRESSA [Suspect]
     Indication: NON-SMALL CELL LUNG CANCER
     Dosage: 250 MG QD PO
     Route: 048
     Dates: start: 20040331, end: 20040806
  2. COLACE [Concomitant]
  3. ASPIRIN [Concomitant]
  4. ZANTAC [Concomitant]
  5. CARBOPLATIN [Concomitant]
  6. GEMCITABINE [Concomitant]

REACTIONS (1)
  - HEPATITIS B [None]
